FAERS Safety Report 12572389 (Version 1)
Quarter: 2016Q3

REPORT INFORMATION
  Report Type: Report from Study
  Country: BR (occurrence: BR)
  Receive Date: 20160719
  Receipt Date: 20160719
  Transmission Date: 20161109
  Serious: Yes (Other)
  Sender: FDA-Public Use
  Company Number: PHHY2015BR121584

PATIENT
  Age: 38 Year
  Sex: Male
  Weight: 70 kg

DRUGS (7)
  1. ILARIS [Suspect]
     Active Substance: CANAKINUMAB
     Indication: TUMOUR NECROSIS FACTOR RECEPTOR-ASSOCIATED PERIODIC SYNDROME
     Dosage: 150 MG, QMO
     Route: 058
     Dates: start: 20150821
  2. ILARIS [Suspect]
     Active Substance: CANAKINUMAB
     Indication: CRYOPYRIN ASSOCIATED PERIODIC SYNDROME
  3. COLCHICINE. [Concomitant]
     Active Substance: COLCHICINE
     Indication: PERICARDITIS
     Dosage: 1 MG, QD
     Route: 048
     Dates: start: 2014
  4. ILARIS [Suspect]
     Active Substance: CANAKINUMAB
     Indication: FAMILIAL MEDITERRANEAN FEVER
     Dosage: 300 MG, QMO
     Route: 058
     Dates: start: 201606
  5. PREDNISONE. [Concomitant]
     Active Substance: PREDNISONE
     Indication: PERICARDITIS
     Dosage: 5 MG, QD
     Route: 048
     Dates: start: 2014
  6. PREDNISONE. [Concomitant]
     Active Substance: PREDNISONE
     Dosage: 15 MG, QD
     Route: 048
     Dates: start: 201605
  7. ILARIS [Suspect]
     Active Substance: CANAKINUMAB
     Indication: PERICARDITIS

REACTIONS (6)
  - Pyrexia [Recovering/Resolving]
  - Malaise [Recovering/Resolving]
  - Product use issue [Unknown]
  - Pericarditis [Unknown]
  - Chest pain [Recovering/Resolving]
  - Dyspnoea [Recovering/Resolving]

NARRATIVE: CASE EVENT DATE: 201605
